FAERS Safety Report 8347808-8 (Version None)
Quarter: 2012Q2

REPORT INFORMATION
  Report Type: 
  Country: None (occurrence: None)
  Receive Date: 20120509
  Receipt Date: 20120501
  Transmission Date: 20120825
  Serious: Yes (Hospitalization, Congenital Anomaly)
  Sender: FDA-Public Use
  Company Number: US-GLAXOSMITHKLINE-A0976799A

PATIENT
  Sex: Male
  Weight: 4.5 kg

DRUGS (3)
  1. MOTRIN [Concomitant]
  2. MIGRAINE MEDICATION [Concomitant]
  3. PAXIL [Suspect]
     Indication: PRODUCT USED FOR UNKNOWN INDICATION
     Dosage: 20MG PER DAY
     Route: 064

REACTIONS (3)
  - DILATATION VENTRICULAR [None]
  - ATRIAL SEPTAL DEFECT [None]
  - FOETAL EXPOSURE DURING PREGNANCY [None]
